FAERS Safety Report 10266803 (Version 1)
Quarter: 2014Q2

REPORT INFORMATION
  Report Type: Spontaneous
  Country: US (occurrence: US)
  Receive Date: 20140630
  Receipt Date: 20140630
  Transmission Date: 20141212
  Serious: Yes (Death)
  Sender: FDA-Public Use
  Company Number: US-ROCHE-1426429

PATIENT
  Age: 58 Year
  Sex: Female

DRUGS (1)
  1. AVASTIN [Suspect]
     Indication: GLIOBLASTOMA
     Dosage: 1 DOSE
     Route: 041
     Dates: start: 200601, end: 200601

REACTIONS (1)
  - Thrombocytopenia [Fatal]
